FAERS Safety Report 20003929 (Version 5)
Quarter: 2025Q1

REPORT INFORMATION
  Report Type: Spontaneous
  Country: CA (occurrence: CA)
  Receive Date: 20211027
  Receipt Date: 20250107
  Transmission Date: 20250408
  Serious: Yes (Life-Threatening, Hospitalization, Other)
  Sender: TEVA
  Company Number: CA-TEVA-2021-CA-1969733

PATIENT
  Age: 47 Year
  Sex: Female

DRUGS (84)
  1. CYCLOBENZAPRINE [Suspect]
     Active Substance: CYCLOBENZAPRINE
     Indication: Scoliosis
     Route: 048
  2. CYCLOBENZAPRINE [Suspect]
     Active Substance: CYCLOBENZAPRINE
     Indication: Scoliosis
     Route: 048
  3. CYCLOBENZAPRINE [Suspect]
     Active Substance: CYCLOBENZAPRINE
     Indication: Scoliosis
     Route: 048
  4. CYCLOBENZAPRINE [Suspect]
     Active Substance: CYCLOBENZAPRINE
     Indication: Scoliosis
     Route: 048
  5. CYCLOBENZAPRINE [Suspect]
     Active Substance: CYCLOBENZAPRINE
     Indication: Scoliosis
     Route: 048
  6. ALBUTEROL [Concomitant]
     Active Substance: ALBUTEROL
     Indication: Chronic obstructive pulmonary disease
     Route: 055
  7. ALBUTEROL [Concomitant]
     Active Substance: ALBUTEROL
     Indication: Chronic obstructive pulmonary disease
     Route: 055
  8. SPIRIVA [Concomitant]
     Active Substance: TIOTROPIUM BROMIDE MONOHYDRATE
     Indication: Product used for unknown indication
     Route: 065
  9. QUETIAPINE FUMARATE [Interacting]
     Active Substance: QUETIAPINE FUMARATE
     Indication: Major depression
     Route: 048
  10. QUETIAPINE FUMARATE [Interacting]
     Active Substance: QUETIAPINE FUMARATE
     Indication: Major depression
     Route: 065
  11. NAPROXEN [Concomitant]
     Active Substance: NAPROXEN
     Indication: Pain
     Route: 048
  12. NAPROXEN [Concomitant]
     Active Substance: NAPROXEN
     Indication: Pain
     Route: 048
  13. NALOXONE [Concomitant]
     Active Substance: NALOXONE
     Indication: Product used for unknown indication
     Route: 065
  14. METHADONE [Interacting]
     Active Substance: METHADONE HYDROCHLORIDE
     Indication: Drug use disorder
     Route: 048
  15. METHADONE [Interacting]
     Active Substance: METHADONE HYDROCHLORIDE
     Indication: Drug use disorder
     Route: 065
  16. METHADONE [Interacting]
     Active Substance: METHADONE HYDROCHLORIDE
     Indication: Drug use disorder
     Route: 065
  17. METHADONE [Interacting]
     Active Substance: METHADONE HYDROCHLORIDE
     Indication: Drug use disorder
     Route: 048
  18. METHADONE [Interacting]
     Active Substance: METHADONE HYDROCHLORIDE
     Indication: Drug use disorder
     Route: 065
  19. METHADONE [Interacting]
     Active Substance: METHADONE HYDROCHLORIDE
     Indication: Drug use disorder
     Dosage: DOSE FORM: NOT SPECIFIED
     Route: 048
  20. FUROSEMIDE [Concomitant]
     Active Substance: FUROSEMIDE
     Indication: Oedema peripheral
     Route: 048
  21. FUROSEMIDE [Concomitant]
     Active Substance: FUROSEMIDE
     Indication: Oedema peripheral
     Route: 065
  22. FUROSEMIDE [Concomitant]
     Active Substance: FUROSEMIDE
     Indication: Oedema peripheral
     Route: 065
  23. RISPERIDONE [Interacting]
     Active Substance: RISPERIDONE
     Indication: Affective disorder
     Route: 048
  24. ESTRADIOL BENZOATE [Concomitant]
     Active Substance: ESTRADIOL BENZOATE
     Indication: Endometriosis
     Dosage: ESTRADIOL VALERATE
     Route: 048
  25. ESTRADIOL BENZOATE [Concomitant]
     Active Substance: ESTRADIOL BENZOATE
     Indication: Endometriosis
     Route: 065
  26. DOXEPIN HYDROCHLORIDE [Interacting]
     Active Substance: DOXEPIN HYDROCHLORIDE
     Indication: Major depression
     Route: 048
  27. DOXEPIN HYDROCHLORIDE [Interacting]
     Active Substance: DOXEPIN HYDROCHLORIDE
     Indication: Major depression
     Route: 048
  28. DOXEPIN HYDROCHLORIDE [Interacting]
     Active Substance: DOXEPIN HYDROCHLORIDE
     Indication: Major depression
     Route: 048
  29. DOXEPIN HYDROCHLORIDE [Interacting]
     Active Substance: DOXEPIN HYDROCHLORIDE
     Indication: Major depression
     Route: 048
  30. DOXEPIN HYDROCHLORIDE [Interacting]
     Active Substance: DOXEPIN HYDROCHLORIDE
     Indication: Major depression
     Route: 048
  31. DOXEPIN HYDROCHLORIDE [Interacting]
     Active Substance: DOXEPIN HYDROCHLORIDE
     Indication: Major depression
     Route: 048
  32. DOXEPIN HYDROCHLORIDE [Interacting]
     Active Substance: DOXEPIN HYDROCHLORIDE
     Indication: Major depression
     Route: 048
  33. DIVALPROEX SODIUM [Interacting]
     Active Substance: DIVALPROEX SODIUM
     Indication: Mania
     Route: 048
  34. DIVALPROEX SODIUM [Interacting]
     Active Substance: DIVALPROEX SODIUM
     Indication: Mania
     Route: 048
  35. DIVALPROEX SODIUM [Interacting]
     Active Substance: DIVALPROEX SODIUM
     Indication: Mania
     Route: 048
  36. DIVALPROEX SODIUM [Interacting]
     Active Substance: DIVALPROEX SODIUM
     Indication: Mania
     Route: 048
  37. DIVALPROEX SODIUM [Interacting]
     Active Substance: DIVALPROEX SODIUM
     Indication: Mania
     Route: 048
  38. CLONIDINE [Concomitant]
     Active Substance: CLONIDINE
     Indication: Product used for unknown indication
     Route: 065
  39. ATENOL (PREMPHARM) [Concomitant]
     Indication: Hypertension
     Dosage: ATENOLOL
     Route: 048
  40. ATENOL (PREMPHARM) [Concomitant]
     Indication: Hypertension
     Route: 065
  41. DOXEPIN [Concomitant]
     Active Substance: DOXEPIN
     Indication: Product used for unknown indication
     Route: 065
  42. FLUOXETINE [Concomitant]
     Active Substance: FLUOXETINE HYDROCHLORIDE
     Indication: Product used for unknown indication
     Route: 065
  43. QUETIAPINE [Concomitant]
     Active Substance: QUETIAPINE
     Indication: Product used for unknown indication
     Route: 065
  44. RISPERIDONE [Concomitant]
     Active Substance: RISPERIDONE
     Indication: Product used for unknown indication
     Route: 065
  45. FLUOXETINE [Interacting]
     Active Substance: FLUOXETINE HYDROCHLORIDE
     Indication: Major depression
     Dosage: ACH
     Route: 065
  46. DIVALPROEX SODIUM [Interacting]
     Active Substance: DIVALPROEX SODIUM
     Indication: Affective disorder
     Route: 048
  47. DIVALPROEX SODIUM [Interacting]
     Active Substance: DIVALPROEX SODIUM
     Indication: Affective disorder
     Route: 048
  48. DIVALPROEX SODIUM [Interacting]
     Active Substance: DIVALPROEX SODIUM
     Indication: Affective disorder
     Route: 048
  49. DIVALPROEX SODIUM [Interacting]
     Active Substance: DIVALPROEX SODIUM
     Indication: Affective disorder
     Route: 048
  50. DIVALPROEX SODIUM [Interacting]
     Active Substance: DIVALPROEX SODIUM
     Indication: Affective disorder
     Route: 048
  51. RISPERDAL [Interacting]
     Active Substance: RISPERIDONE
     Indication: Affective disorder
     Route: 048
  52. DOXEPIN [Interacting]
     Active Substance: DOXEPIN
     Indication: Major depression
     Route: 048
  53. DOXEPIN [Interacting]
     Active Substance: DOXEPIN
     Indication: Major depression
     Route: 048
  54. DOXEPIN [Interacting]
     Active Substance: DOXEPIN
     Indication: Major depression
     Route: 048
  55. LORAZEPAM [Interacting]
     Active Substance: LORAZEPAM
     Indication: Withdrawal syndrome
     Route: 030
  56. GABAPENTIN [Suspect]
     Active Substance: GABAPENTIN
     Indication: Scoliosis
     Route: 048
  57. GABAPENTIN [Suspect]
     Active Substance: GABAPENTIN
     Indication: Scoliosis
     Route: 065
  58. GABAPENTIN [Suspect]
     Active Substance: GABAPENTIN
     Indication: Scoliosis
     Route: 048
  59. GABAPENTIN [Suspect]
     Active Substance: GABAPENTIN
     Indication: Scoliosis
     Route: 048
  60. FLUOXETINE HYDROCHLORIDE [Suspect]
     Active Substance: FLUOXETINE HYDROCHLORIDE
     Indication: Major depression
     Route: 065
  61. FLUOXETINE HYDROCHLORIDE [Suspect]
     Active Substance: FLUOXETINE HYDROCHLORIDE
     Indication: Major depression
     Dosage: DOSE FORM: NOT SPECIFIED
     Route: 048
  62. FLUOXETINE HYDROCHLORIDE [Suspect]
     Active Substance: FLUOXETINE HYDROCHLORIDE
     Indication: Major depression
     Route: 048
  63. FLUOXETINE HYDROCHLORIDE [Suspect]
     Active Substance: FLUOXETINE HYDROCHLORIDE
     Indication: Major depression
     Route: 048
  64. FLUOXETINE HYDROCHLORIDE [Suspect]
     Active Substance: FLUOXETINE HYDROCHLORIDE
     Indication: Major depression
     Route: 048
  65. FLUOXETINE HYDROCHLORIDE [Suspect]
     Active Substance: FLUOXETINE HYDROCHLORIDE
     Indication: Major depression
     Route: 048
  66. FLUOXETINE HYDROCHLORIDE [Suspect]
     Active Substance: FLUOXETINE HYDROCHLORIDE
     Indication: Major depression
     Route: 048
  67. RISPERIDONE [Suspect]
     Active Substance: RISPERIDONE
     Indication: Affective disorder
     Route: 048
  68. RISPERIDONE [Suspect]
     Active Substance: RISPERIDONE
     Indication: Affective disorder
     Route: 048
  69. RISPERIDONE [Suspect]
     Active Substance: RISPERIDONE
     Indication: Affective disorder
     Route: 048
  70. LORAZEPAM [Suspect]
     Active Substance: LORAZEPAM
     Indication: Withdrawal syndrome
     Route: 048
  71. LORAZEPAM [Suspect]
     Active Substance: LORAZEPAM
     Indication: Withdrawal syndrome
     Route: 048
  72. LORAZEPAM [Suspect]
     Active Substance: LORAZEPAM
     Indication: Withdrawal syndrome
     Route: 048
  73. LORAZEPAM [Suspect]
     Active Substance: LORAZEPAM
     Indication: Withdrawal syndrome
     Route: 065
  74. LORAZEPAM [Suspect]
     Active Substance: LORAZEPAM
     Indication: Withdrawal syndrome
     Route: 065
  75. LORAZEPAM [Suspect]
     Active Substance: LORAZEPAM
     Indication: Withdrawal syndrome
     Route: 065
  76. LORAZEPAM [Suspect]
     Active Substance: LORAZEPAM
     Indication: Withdrawal syndrome
     Route: 065
  77. LORAZEPAM [Suspect]
     Active Substance: LORAZEPAM
     Indication: Withdrawal syndrome
     Route: 065
  78. LORAZEPAM [Suspect]
     Active Substance: LORAZEPAM
     Indication: Withdrawal syndrome
     Route: 030
  79. LORAZEPAM [Suspect]
     Active Substance: LORAZEPAM
     Indication: Withdrawal syndrome
     Route: 065
  80. LORAZEPAM [Suspect]
     Active Substance: LORAZEPAM
     Indication: Withdrawal syndrome
     Route: 048
  81. QUETIAPINE FUMARATE [Suspect]
     Active Substance: QUETIAPINE FUMARATE
     Indication: Major depression
     Route: 065
  82. QUETIAPINE FUMARATE [Suspect]
     Active Substance: QUETIAPINE FUMARATE
     Indication: Major depression
     Route: 048
  83. QUETIAPINE FUMARATE [Suspect]
     Active Substance: QUETIAPINE FUMARATE
     Indication: Major depression
     Route: 048
  84. TIOTROPIUM BROMIDE [Concomitant]
     Active Substance: TIOTROPIUM BROMIDE
     Indication: Chronic obstructive pulmonary disease
     Route: 055

REACTIONS (6)
  - Depressed level of consciousness [Unknown]
  - Drug interaction [Unknown]
  - Respiratory depression [Unknown]
  - Toxicity to various agents [Unknown]
  - Off label use [Unknown]
  - Potentiating drug interaction [Unknown]
